FAERS Safety Report 8015024-5 (Version None)
Quarter: 2011Q4

REPORT INFORMATION
  Report Type: 
  Country: None (occurrence: None)
  Receive Date: 20111230
  Receipt Date: 20111220
  Transmission Date: 20120403
  Serious: No
  Sender: FDA-Public Use
  Company Number: US-BIOGENIDEC-2010BI035899

PATIENT
  Sex: Female

DRUGS (2)
  1. TYSABRI [Suspect]
     Indication: MULTIPLE SCLEROSIS
     Route: 042
     Dates: start: 20100514
  2. AVONEX [Concomitant]
     Indication: MULTIPLE SCLEROSIS
     Route: 030
     Dates: start: 20100501, end: 20100101

REACTIONS (8)
  - SENSATION OF HEAVINESS [None]
  - DEPRESSION [None]
  - WEIGHT DECREASED [None]
  - MUSCULAR WEAKNESS [None]
  - ABASIA [None]
  - FATIGUE [None]
  - HEADACHE [None]
  - ASTHENIA [None]
